FAERS Safety Report 10251955 (Version 1)
Quarter: 2014Q2

REPORT INFORMATION
  Report Type: Report from Study
  Country: JP (occurrence: None)
  Receive Date: 20140619
  Receipt Date: 20140619
  Transmission Date: 20141212
  Serious: Yes (Other)
  Sender: FDA-Public Use
  Company Number: 2008JP001616

PATIENT
  Age: 20 Year
  Sex: Male

DRUGS (9)
  1. PROGRAF (TACROLIMUS) CAPSULE [Suspect]
     Indication: LUPUS NEPHRITIS
     Route: 048
     Dates: start: 20070609, end: 20070706
  2. PREDNISOLONE (PREDNISOLONE) PER ORAL NOS [Concomitant]
  3. METHYLPREDNISOLONE SODIUM SUCCINATE (METHYLPREDNISOLONE SODIUM SUCCINATE) [Concomitant]
  4. BREDININ (MIZORIBINE) [Concomitant]
  5. MARZULENE-S (SODIUM AZULENE SULFONATE_L-GLUTAMINE) [Concomitant]
  6. BAKTAR (SULFAMETHOXAZOLE_TRIMETHOPRIM) [Concomitant]
  7. ISODINE GARGLE (POVIDONE-IODINE) [Concomitant]
  8. PERSANTIN (DIPYRIDAMOLE) [Concomitant]
  9. BLOPRESS (CANDESARTAN CILEXETIL) [Concomitant]

REACTIONS (4)
  - Lupus pleurisy [None]
  - Hypertension [None]
  - Intentional product misuse [None]
  - Urticaria [None]
